FAERS Safety Report 25007698 (Version 2)
Quarter: 2025Q1

REPORT INFORMATION
  Report Type: Report from Study
  Country: US (occurrence: US)
  Receive Date: 20250225
  Receipt Date: 20250320
  Transmission Date: 20250408
  Serious: Yes (Hospitalization)
  Sender: TAKEDA
  Company Number: US-TAKEDA-2024TUS056174

PATIENT
  Age: 52 Year
  Sex: Female
  Weight: 80 kg

DRUGS (49)
  1. HUMAN IMMUNOGLOBULIN G\HYALURONIDASE RECOMBINANT HUMAN [Suspect]
     Active Substance: HUMAN IMMUNOGLOBULIN G\HYALURONIDASE (HUMAN RECOMBINANT)
     Indication: Immunodeficiency common variable
     Dosage: 40 GRAM, Q4WEEKS
     Dates: start: 20240520
  2. HUMAN IMMUNOGLOBULIN G\HYALURONIDASE RECOMBINANT HUMAN [Suspect]
     Active Substance: HUMAN IMMUNOGLOBULIN G\HYALURONIDASE (HUMAN RECOMBINANT)
     Dosage: 50 GRAM, Q3WEEKS
  3. HUMAN IMMUNOGLOBULIN G\HYALURONIDASE RECOMBINANT HUMAN [Suspect]
     Active Substance: HUMAN IMMUNOGLOBULIN G\HYALURONIDASE (HUMAN RECOMBINANT)
  4. HUMAN IMMUNOGLOBULIN G\HYALURONIDASE RECOMBINANT HUMAN [Suspect]
     Active Substance: HUMAN IMMUNOGLOBULIN G\HYALURONIDASE (HUMAN RECOMBINANT)
  5. EPINEPHRINE [Concomitant]
     Active Substance: EPINEPHRINE
  6. ACETAMINOPHEN [Concomitant]
     Active Substance: ACETAMINOPHEN
  7. SODIUM CHLORIDE [Concomitant]
     Active Substance: SODIUM CHLORIDE
  8. DULOXETINE HYDROCHLORIDE [Concomitant]
     Active Substance: DULOXETINE HYDROCHLORIDE
  9. GABAPENTIN [Concomitant]
     Active Substance: GABAPENTIN
  10. VALACYCLOVIR [Concomitant]
     Active Substance: VALACYCLOVIR HYDROCHLORIDE
  11. LIPITOR [Concomitant]
     Active Substance: ATORVASTATIN CALCIUM
  12. FUROSEMIDE [Concomitant]
     Active Substance: FUROSEMIDE
  13. PLAQUENIL [Concomitant]
     Active Substance: HYDROXYCHLOROQUINE SULFATE
  14. FISH OIL [Concomitant]
     Active Substance: FISH OIL
  15. NYSTATIN [Concomitant]
     Active Substance: NYSTATIN
  16. TIZANIDINE HYDROCHLORIDE [Concomitant]
     Active Substance: TIZANIDINE HYDROCHLORIDE
  17. Dulcolax [Concomitant]
  18. ALBUTEROL SULFATE [Concomitant]
     Active Substance: ALBUTEROL SULFATE
  19. DICYCLOMINE HYDROCHLORIDE [Concomitant]
     Active Substance: DICYCLOMINE HYDROCHLORIDE
  20. PANTOPRAZOLE SODIUM [Concomitant]
     Active Substance: PANTOPRAZOLE SODIUM
  21. GLUCOSAMINE [Concomitant]
     Active Substance: GLUCOSAMINE
  22. ZOLPIDEM TARTRATE [Concomitant]
     Active Substance: ZOLPIDEM TARTRATE
  23. VITAMIN D [Concomitant]
     Active Substance: VITAMIN D NOS
  24. METHYLPREDNISOLONE [Concomitant]
     Active Substance: METHYLPREDNISOLONE
  25. FLONASE ALLERGY RELIEF [Concomitant]
     Active Substance: FLUTICASONE PROPIONATE
  26. HYDROXYCHLOROQUINE SULFATE [Concomitant]
     Active Substance: HYDROXYCHLOROQUINE SULFATE
  27. TRELEGY ELLIPTA [Concomitant]
     Active Substance: FLUTICASONE FUROATE\UMECLIDINIUM BROMIDE\VILANTEROL TRIFENATATE
  28. SUCRALFATE [Concomitant]
     Active Substance: SUCRALFATE
  29. LIDOCAINE [Concomitant]
     Active Substance: LIDOCAINE
  30. DICLOFENAC SODIUM [Concomitant]
     Active Substance: DICLOFENAC SODIUM
  31. MOTEGRITY [Concomitant]
     Active Substance: PRUCALOPRIDE SUCCINATE
  32. CRANBERRY [Concomitant]
     Active Substance: CRANBERRY
  33. HYDROCHLOROTHIAZIDE [Concomitant]
     Active Substance: HYDROCHLOROTHIAZIDE
  34. XOLAIR [Concomitant]
     Active Substance: OMALIZUMAB
  35. MONTELUKAST SODIUM [Concomitant]
     Active Substance: MONTELUKAST SODIUM
  36. COSENTYX [Concomitant]
     Active Substance: SECUKINUMAB
  37. PREDNISONE [Concomitant]
     Active Substance: PREDNISONE
  38. CARISOPRODOL [Concomitant]
     Active Substance: CARISOPRODOL
  39. DIPHENHYDRAMINE HYDROCHLORIDE [Concomitant]
     Active Substance: DIPHENHYDRAMINE HYDROCHLORIDE
  40. ONDANSETRON [Concomitant]
     Active Substance: ONDANSETRON
  41. FEXOFENADINE HYDROCHLORIDE [Concomitant]
     Active Substance: FEXOFENADINE HYDROCHLORIDE
  42. ENBREL [Concomitant]
     Active Substance: ETANERCEPT
  43. BOTOX [Concomitant]
     Active Substance: ONABOTULINUMTOXINA
  44. TRAZODONE HCL [Concomitant]
     Active Substance: TRAZODONE HYDROCHLORIDE
  45. FLUCONAZOLE [Concomitant]
     Active Substance: FLUCONAZOLE
  46. BUDESONIDE [Concomitant]
     Active Substance: BUDESONIDE
  47. OXYCODONE [Concomitant]
     Active Substance: OXYCODONE
  48. DIPHENHYDRAMINE [Concomitant]
     Active Substance: DIPHENHYDRAMINE
  49. UBRELVY [Concomitant]
     Active Substance: UBROGEPANT

REACTIONS (31)
  - Foot fracture [Unknown]
  - Somnolence [Unknown]
  - Blister [Unknown]
  - Skin infection [Unknown]
  - Diplopia [Unknown]
  - Axillary mass [Unknown]
  - Candida infection [Unknown]
  - Wrong technique in product usage process [Unknown]
  - Tongue erythema [Unknown]
  - Swollen tongue [Unknown]
  - Escherichia infection [Unknown]
  - Dermatitis contact [Unknown]
  - Skin disorder [Unknown]
  - Bacterial vaginosis [Unknown]
  - Eye infection [Unknown]
  - Dysuria [Unknown]
  - Urinary tract infection [Not Recovered/Not Resolved]
  - Illness [Unknown]
  - Stress fracture [Unknown]
  - Product use issue [Unknown]
  - Foot deformity [Unknown]
  - Chest discomfort [Unknown]
  - Nasal congestion [Unknown]
  - Tremor [Unknown]
  - Malaise [Unknown]
  - Abdominal pain upper [Unknown]
  - Fatigue [Unknown]
  - Infusion site pain [Unknown]
  - Erythema [Unknown]
  - Nausea [Unknown]
  - Asthenia [Unknown]

NARRATIVE: CASE EVENT DATE: 20240601
